FAERS Safety Report 9898363 (Version 2)
Quarter: 2014Q2

REPORT INFORMATION
  Report Type: Spontaneous
  Country: US (occurrence: US)
  Receive Date: 20140214
  Receipt Date: 20140421
  Transmission Date: 20141212
  Serious: Yes (Other)
  Sender: FDA-Public Use
  Company Number: US-B.I. PHARMACEUTICALS,INC./RIDGEFIELD-2014-BI-06150BP

PATIENT
  Age: 77 Year
  Sex: Female
  Weight: 49 kg

DRUGS (8)
  1. SPIRIVA [Suspect]
     Indication: COUGH
     Route: 055
     Dates: start: 20140204, end: 20140315
  2. SPIRIVA [Suspect]
     Indication: CHRONIC OBSTRUCTIVE PULMONARY DISEASE
  3. ASPIRIN [Concomitant]
     Indication: CEREBROVASCULAR ACCIDENT
     Dosage: DOSE PER APPLICATION:325
     Route: 048
  4. XANAX [Concomitant]
     Indication: ANXIETY
     Dosage: DOSE PER APPLICATION:0.25
     Route: 065
  5. NEXIUM [Concomitant]
     Indication: GASTROOESOPHAGEAL REFLUX DISEASE
     Route: 065
  6. MEMANTIN [Concomitant]
     Indication: NEUROPATHY PERIPHERAL
     Dosage: DOSE PER APPLICATION: 300
     Route: 065
  7. COREG [Concomitant]
     Indication: CORONARY ARTERY DISEASE
     Dosage: DOSE PER APPLICATION:3.125MG
     Route: 065
  8. ZOCOR [Concomitant]
     Indication: HYPERLIPIDAEMIA
     Dosage: DOSE PER APPLICATION: 20
     Route: 065

REACTIONS (2)
  - Ovarian cancer stage III [Unknown]
  - Vertigo [Recovered/Resolved]
